FAERS Safety Report 9719623 (Version 1)
Quarter: 2013Q4

REPORT INFORMATION
  Report Type: Spontaneous
  Country: US (occurrence: US)
  Receive Date: 20131128
  Receipt Date: 20131128
  Transmission Date: 20140711
  Serious: Yes (Life-Threatening, Hospitalization, Other)
  Sender: FDA-Public Use
  Company Number: US-ROCHE-1310631

PATIENT
  Age: 77 Year
  Sex: Male

DRUGS (15)
  1. XOLAIR [Suspect]
     Indication: PRODUCT USED FOR UNKNOWN INDICATION
     Route: 065
  2. DALIRESP [Concomitant]
  3. ALBUTEROL [Concomitant]
  4. THEO-24 [Concomitant]
  5. SINGULAIR [Concomitant]
  6. BECONASE [Concomitant]
  7. SPIRIVA [Concomitant]
  8. CEPHALEXIN [Concomitant]
  9. ATORVASTATIN [Concomitant]
  10. TAMSULOSIN HYDROCHLORIDE [Concomitant]
  11. VITAMIN E [Concomitant]
  12. GLUCOSAMINE SULFATE/MSM [Concomitant]
  13. VITAMIN D3 [Concomitant]
  14. ALEVE [Concomitant]
  15. BABY ASPIRIN [Concomitant]

REACTIONS (5)
  - Feeling abnormal [Unknown]
  - Asthma [Recovering/Resolving]
  - Wrist fracture [Unknown]
  - Arthritis [Unknown]
  - Insomnia [Unknown]
